FAERS Safety Report 6091175-X (Version None)
Quarter: 2009Q1

REPORT INFORMATION
  Report Type: 
  Country: None (occurrence: None)
  Receive Date: 20090225
  Receipt Date: 20090220
  Transmission Date: 20090719
  Serious: Yes (Hospitalization)
  Sender: FDA-Public Use
  Company Number: US-BRISTOL-MYERS SQUIBB COMPANY-14515209

PATIENT
  Age: 52 Year
  Sex: Female

DRUGS (3)
  1. CYTOXAN [Suspect]
     Dates: start: 20090130
  2. TAXOTERE [Suspect]
     Dosage: 1 DF = 120-140 MG/M2
     Dates: start: 20090130
  3. ADRIAMYCIN PFS [Suspect]
     Dates: start: 20090130

REACTIONS (2)
  - GASTROINTESTINAL NECROSIS [None]
  - SHOCK [None]
